FAERS Safety Report 23046606 (Version 1)
Quarter: 2023Q4

REPORT INFORMATION
  Report Type: Spontaneous
  Country: DE (occurrence: None)
  Receive Date: 20231009
  Receipt Date: 20231009
  Transmission Date: 20240109
  Serious: No
  Sender: FDA-Public Use
  Company Number: DE-ROCHE-3434568

PATIENT
  Sex: Male

DRUGS (1)
  1. OCREVUS [Suspect]
     Active Substance: OCRELIZUMAB
     Indication: Product used for unknown indication
     Route: 065

REACTIONS (9)
  - Fatigue [Unknown]
  - Herpes virus infection [Unknown]
  - Varicose vein [Unknown]
  - Accident [Unknown]
  - Peroneal nerve palsy [Unknown]
  - COVID-19 [Unknown]
  - Contusion [Unknown]
  - Skin laceration [Unknown]
  - Muscular weakness [Unknown]
